FAERS Safety Report 9677693 (Version 1)
Quarter: 2013Q4

REPORT INFORMATION
  Report Type: Spontaneous
  Country: DE (occurrence: DE)
  Receive Date: 20131108
  Receipt Date: 20131108
  Transmission Date: 20140711
  Serious: Yes (Other)
  Sender: FDA-Public Use
  Company Number: DE-JNJFOC-20131019308

PATIENT
  Age: 23 Year
  Sex: Female
  Weight: 64 kg

DRUGS (5)
  1. TOPAMAX [Suspect]
     Indication: PARTIAL SEIZURES
     Route: 048
     Dates: start: 20120704, end: 20130406
  2. TIMONIL [Suspect]
     Indication: PARTIAL SEIZURES
     Dosage: 600MG-300MG-750MG
     Route: 048
     Dates: start: 20120704, end: 20130406
  3. TIMOLOL MALEATE [Suspect]
     Indication: GLAUCOMA
     Dosage: NOT DURING 2ST TRIMESTER
     Route: 047
  4. MINPROSTIN [Suspect]
     Indication: LABOUR INDUCTION
     Dosage: 3 TRIMESTER: INTRAPARTUM
     Route: 067
  5. FOLSAURE [Concomitant]
     Indication: PROPHYLAXIS OF NEURAL TUBE DEFECT
     Dosage: 8.6- 12 GESTATIONAL WEEK
     Route: 048

REACTIONS (2)
  - Convulsion [Unknown]
  - Exposure during pregnancy [Recovered/Resolved]
